FAERS Safety Report 7610549-6 (Version None)
Quarter: 2011Q3

REPORT INFORMATION
  Report Type: 
  Country: None (occurrence: None)
  Receive Date: 20110715
  Receipt Date: 20110706
  Transmission Date: 20111222
  Serious: Yes (Other)
  Sender: FDA-Public Use
  Company Number: JP-ELI_LILLY_AND_COMPANY-JP201107002115

PATIENT
  Age: 63 Year
  Sex: Female
  Weight: 34 kg

DRUGS (3)
  1. ERLOTINIB HYDROCHLORIDE [Concomitant]
     Indication: PANCREATIC CARCINOMA
     Dosage: UNK
     Route: 065
     Dates: start: 20070801, end: 20080701
  2. GEMZAR [Suspect]
     Indication: PANCREATIC CARCINOMA
     Dosage: UNK UNK, UNKNOWN
     Route: 042
     Dates: start: 20070801, end: 20080701
  3. GEMZAR [Suspect]
     Dosage: 500 MG/M2, UNKNOWN
     Route: 042
     Dates: start: 20080801

REACTIONS (5)
  - ADVERSE REACTION [None]
  - CHRONIC OBSTRUCTIVE PULMONARY DISEASE [None]
  - ASTHMA [None]
  - CARDIAC FAILURE [None]
  - INTERSTITIAL LUNG DISEASE [None]
